FAERS Safety Report 16919877 (Version 1)
Quarter: 2019Q4

REPORT INFORMATION
  Report Type: Spontaneous
  Country: US (occurrence: US)
  Receive Date: 20190822
  Receipt Date: 20190822
  Transmission Date: 20200122
  Serious: Yes (Hospitalization)
  Sender: FDA-Public Use
  Company Number: None

PATIENT
  Age: 14 Year
  Sex: Male
  Weight: 66.9 kg

DRUGS (11)
  1. ZOFRAN [Concomitant]
     Active Substance: ONDANSETRON HYDROCHLORIDE
  2. VINCRISTINE SULFATE. [Suspect]
     Active Substance: VINCRISTINE SULFATE
     Dates: end: 20181025
  3. RANITIDINE. [Concomitant]
     Active Substance: RANITIDINE
  4. PREDNISONE. [Suspect]
     Active Substance: PREDNISONE
     Dates: end: 20181025
  5. ONCASPAR [Suspect]
     Active Substance: PEGASPARGASE
     Dates: end: 20181014
  6. OMEPRAZOLE. [Concomitant]
     Active Substance: OMEPRAZOLE
  7. DAUNOROBICIN [Suspect]
     Active Substance: DAUNORUBICIN
     Dates: end: 20181025
  8. METHOTREXATE. [Suspect]
     Active Substance: METHOTREXATE
     Dates: end: 20181025
  9. BACTRIM DS [Concomitant]
     Active Substance: SULFAMETHOXAZOLE\TRIMETHOPRIM
  10. VITAMIN K [Concomitant]
     Active Substance: PHYTONADIONE
  11. CHOLECALCIFEROL [Concomitant]
     Active Substance: CHOLECALCIFEROL

REACTIONS (3)
  - Enterococcal infection [None]
  - Acinetobacter test positive [None]
  - Wound dehiscence [None]

NARRATIVE: CASE EVENT DATE: 20181030
